FAERS Safety Report 13639743 (Version 1)
Quarter: 2017Q2

REPORT INFORMATION
  Report Type: Spontaneous
  Country: US (occurrence: US)
  Receive Date: 20170609
  Receipt Date: 20170609
  Transmission Date: 20170830
  Serious: No
  Sender: FDA-Public Use
  Company Number: US-ROCHE-1038612

PATIENT
  Age: 46 Year

DRUGS (1)
  1. KLONOPIN [Suspect]
     Active Substance: CLONAZEPAM
     Indication: PRODUCT USED FOR UNKNOWN INDICATION
     Dosage: SINCE JULY; 1/2 MG TWICE A DAY
     Route: 065

REACTIONS (3)
  - Balance disorder [Unknown]
  - Trismus [Unknown]
  - Asthenia [Unknown]
